FAERS Safety Report 25628015 (Version 3)
Quarter: 2025Q3

REPORT INFORMATION
  Report Type: Spontaneous
  Country: US (occurrence: US)
  Receive Date: 20250731
  Receipt Date: 20250917
  Transmission Date: 20251020
  Serious: No
  Sender: GLAXOSMITHKLINE
  Company Number: US-GSK-US2025AMR084595

PATIENT
  Age: 79 Year
  Sex: Female

DRUGS (1)
  1. SUMATRIPTAN SUCCINATE [Suspect]
     Active Substance: SUMATRIPTAN SUCCINATE
     Indication: Product used for unknown indication

REACTIONS (6)
  - Headache [Unknown]
  - Tremor [Unknown]
  - Sleep deficit [Unknown]
  - Photosensitivity reaction [Unknown]
  - Product dose omission issue [Unknown]
  - Product complaint [Unknown]
